FAERS Safety Report 10960661 (Version 1)
Quarter: 2015Q1

REPORT INFORMATION
  Report Type: Report from Study
  Country: MW (occurrence: None)
  Receive Date: 20150325
  Receipt Date: 20150325
  Transmission Date: 20150721
  Serious: Yes (Hospitalization, Other)
  Sender: FDA-Public Use
  Company Number: MW2015GSK037853

PATIENT
  Age: 34 Year
  Sex: Female

DRUGS (6)
  1. FOOD SUPPLEMENT NOS (NUTRITIONAL SUPPLEMENT NOS) [Concomitant]
  2. NEVIRAPINE. [Suspect]
     Active Substance: NEVIRAPINE
     Dates: start: 20141111
  3. ZIDOVUDINE. [Suspect]
     Active Substance: ZIDOVUDINE
     Dates: start: 20141111
  4. COTRIMOXAZOLE [Suspect]
     Active Substance: SULFAMETHOXAZOLE\TRIMETHOPRIM
     Dates: start: 20141105
  5. LAMIVUDINE (LAMIVUDINE) UNKNOWN [Suspect]
     Active Substance: LAMIVUDINE
     Dates: start: 20141111
  6. RALTEGRAVIR (RALTEGRAVIR) UNKNOWN [Suspect]
     Active Substance: RALTEGRAVIR
     Dates: start: 20141111

REACTIONS (7)
  - Red blood cell count decreased [None]
  - Meningitis cryptococcal [None]
  - Haemoglobin decreased [None]
  - Blood pressure diastolic increased [None]
  - Blood glucose decreased [None]
  - White blood cell count decreased [None]
  - Haematocrit decreased [None]

NARRATIVE: CASE EVENT DATE: 20141120
